FAERS Safety Report 9286259 (Version 3)
Quarter: 2013Q2

REPORT INFORMATION
  Report Type: Report from Study
  Country: DE (occurrence: DE)
  Receive Date: 20130513
  Receipt Date: 20130530
  Transmission Date: 20140414
  Serious: Yes (Other)
  Sender: FDA-Public Use
  Company Number: DE-GLAXOSMITHKLINE-B0890904A

PATIENT
  Sex: Female

DRUGS (3)
  1. PAZOPANIB [Suspect]
     Indication: RENAL CELL CARCINOMA
     Dosage: 800MG PER DAY
     Route: 048
     Dates: start: 20130201
  2. JODETTEN DEPOT [Concomitant]
     Dosage: 2MG WEEKLY
     Dates: start: 1990
  3. RAMIPRIL [Concomitant]
     Indication: HYPOTENSION
     Dates: start: 20130412

REACTIONS (1)
  - Tachycardia [Recovered/Resolved]
